FAERS Safety Report 4639520-3 (Version None)
Quarter: 2005Q2

REPORT INFORMATION
  Report Type: 
  Country: None (occurrence: None)
  Receive Date: 20050418
  Receipt Date: 20050406
  Transmission Date: 20051028
  Serious: Yes (Other)
  Sender: FDA-Public Use
  Company Number: 2005056425

PATIENT
  Age: 70 Year
  Sex: Male

DRUGS (6)
  1. FELDENE [Suspect]
     Indication: GOUT
     Dosage: 20 MG (20 MG, DAILY), ORAL
     Route: 048
     Dates: end: 19960203
  2. ALDACTONE [Suspect]
     Indication: CARDIAC FAILURE CONGESTIVE
     Dosage: 50 MG (50 MG, DAILY), ORAL
     Route: 048
     Dates: end: 19960203
  3. CAPTOPRIL [Suspect]
     Indication: CARDIAC FAILURE CONGESTIVE
     Dosage: 75 MG (75 MG, DAILY), ORAL
     Route: 048
     Dates: end: 19960203
  4. ASPIRIN [Suspect]
     Indication: MYOCARDIAL ISCHAEMIA
     Dosage: 100 MG (100 MG, DAILY), ORAL
     Route: 048
     Dates: end: 19960203
  5. FUROSEMIDE [Concomitant]
  6. ALBUTEROL SULFATE HFA [Concomitant]

REACTIONS (2)
  - HYPERCHLORAEMIA [None]
  - HYPERKALAEMIA [None]
